FAERS Safety Report 7993907-X (Version None)
Quarter: 2011Q4

REPORT INFORMATION
  Report Type: 
  Country: None (occurrence: None)
  Receive Date: 20111215
  Receipt Date: 20111129
  Transmission Date: 20120403
  Serious: Yes (Hospitalization)
  Sender: FDA-Public Use
  Company Number: 1000026103

PATIENT
  Age: 74 Year
  Sex: Female

DRUGS (8)
  1. SPIRIVA (TIOTROPIUM BROMIDE) (INHALANT) (TIOTROPIUM BROMIDE) [Concomitant]
  2. ROFLUMILAST (ROFLUMILAST) (TABLETS) [Suspect]
     Indication: CHRONIC OBSTRUCTIVE PULMONARY DISEASE
     Dosage: 500 MCG (500 MCG, 1 IN 1 D), ORAL
     Route: 048
     Dates: start: 20110418, end: 20110528
  3. PARACET (PARACETAMOL) (PARACETAMOL) [Concomitant]
  4. POTASSIUM CHLORIDE [Concomitant]
  5. VENTOLINE (SALBUTAMOL) (SALBUTAMOL) [Concomitant]
  6. BURINEX (BUMETANIDE) (BUMETANIDE) [Concomitant]
  7. SERETIDE (SALMETEROL, FLUTICASONE) (INHALANT) (SALMETEROL, FLUTICASONE [Concomitant]
  8. NUELIN (THEOPHYLLINE) (THEOPHYLLINE) [Concomitant]

REACTIONS (7)
  - CONDITION AGGRAVATED [None]
  - DIARRHOEA [None]
  - DIZZINESS [None]
  - HEADACHE [None]
  - MYALGIA [None]
  - CHRONIC OBSTRUCTIVE PULMONARY DISEASE [None]
  - INSOMNIA [None]
